FAERS Safety Report 25875176 (Version 1)
Quarter: 2025Q4

REPORT INFORMATION
  Report Type: Spontaneous
  Country: US (occurrence: US)
  Receive Date: 20251003
  Receipt Date: 20251003
  Transmission Date: 20260118
  Serious: Yes (Other)
  Sender: AMGEN
  Company Number: US-AMGEN-USASP2025189729

PATIENT
  Age: 72 Year
  Sex: Female

DRUGS (2)
  1. PREDNISONE [Suspect]
     Active Substance: PREDNISONE
     Indication: Sciatica
     Dosage: UNK
     Route: 065
  2. FLEXERIL [Concomitant]
     Active Substance: CYCLOBENZAPRINE HYDROCHLORIDE
     Indication: Sciatica
     Dosage: UNK
     Route: 065

REACTIONS (6)
  - Basal cell carcinoma [Unknown]
  - Endocarditis [Unknown]
  - Septic embolus [Unknown]
  - Drug ineffective for unapproved indication [Unknown]
  - Streptococcus test positive [Unknown]
  - Off label use [Unknown]
